FAERS Safety Report 8479826-3 (Version None)
Quarter: 2012Q2

REPORT INFORMATION
  Report Type: 
  Country: None (occurrence: None)
  Receive Date: 20120629
  Receipt Date: 20120619
  Transmission Date: 20120825
  Serious: Yes (Other)
  Sender: FDA-Public Use
  Company Number: JP-VERTEX PHARMACEUTICALS INC.-AE-2012-001371

PATIENT
  Age: 59 Year
  Sex: Male

DRUGS (17)
  1. JANUVIA [Concomitant]
     Route: 048
  2. LIVALO [Concomitant]
     Route: 048
  3. ALLOPURINOL [Concomitant]
     Route: 048
     Dates: start: 20120127
  4. PEG-INTRON [Concomitant]
     Indication: HEPATITIS C
     Route: 058
     Dates: start: 20120120, end: 20120316
  5. REBETOL [Concomitant]
     Route: 048
     Dates: start: 20120204, end: 20120210
  6. KETOBUN [Concomitant]
     Route: 048
  7. SELBEX [Concomitant]
     Route: 048
     Dates: start: 20120120
  8. AMOBAN [Concomitant]
     Route: 048
  9. PEG-INTRON [Concomitant]
     Route: 058
     Dates: start: 20120323
  10. DEPAS [Concomitant]
     Route: 048
  11. TELAVIC (TELAPREVIR) [Suspect]
     Indication: HEPATITIS C
     Route: 048
     Dates: start: 20120120, end: 20120122
  12. XYZAL [Concomitant]
     Route: 048
     Dates: start: 20120120, end: 20120306
  13. LOXONIN [Concomitant]
     Route: 048
     Dates: start: 20120305
  14. TELAVIC (TELAPREVIR) [Suspect]
     Route: 048
     Dates: start: 20120125, end: 20120413
  15. REBETOL [Concomitant]
     Indication: HEPATITIS C
     Route: 048
     Dates: start: 20120120, end: 20120203
  16. REBETOL [Concomitant]
     Route: 048
     Dates: start: 20120211
  17. LOSARTAN POTASSIUM [Concomitant]
     Route: 048

REACTIONS (1)
  - RASH [None]
